FAERS Safety Report 20506208 (Version 1)
Quarter: 2022Q1

REPORT INFORMATION
  Report Type: Spontaneous
  Country: CA (occurrence: CA)
  Receive Date: 20220223
  Receipt Date: 20220223
  Transmission Date: 20220424
  Serious: Yes (Other)
  Sender: FDA-Public Use
  Company Number: CA-JNJFOC-20220244063

PATIENT
  Age: 63 Year
  Sex: Male
  Weight: 68 kg

DRUGS (1)
  1. REMICADE [Suspect]
     Active Substance: INFLIXIMAB
     Indication: Psoriasis
     Route: 042

REACTIONS (16)
  - Rhinorrhoea [Unknown]
  - Decreased appetite [Unknown]
  - Lacrimation increased [Unknown]
  - Cough [Unknown]
  - Myalgia [Unknown]
  - Hypersensitivity [Unknown]
  - Influenza [Unknown]
  - Nausea [Unknown]
  - Diarrhoea [Unknown]
  - Headache [Unknown]
  - Pneumonia [Unknown]
  - Pyrexia [Unknown]
  - Arthralgia [Unknown]
  - Inappropriate schedule of product administration [Unknown]
  - Intentional product use issue [Unknown]
  - Off label use [Unknown]
